FAERS Safety Report 16869124 (Version 1)
Quarter: 2019Q3

REPORT INFORMATION
  Report Type: Spontaneous
  Country: US (occurrence: US)
  Receive Date: 20190930
  Receipt Date: 20190930
  Transmission Date: 20191005
  Serious: No
  Sender: FDA-Public Use
  Company Number: US-JNJFOC-20190933661

PATIENT
  Sex: Female
  Weight: 68.1 kg

DRUGS (2)
  1. DEPAKOTE [Concomitant]
     Active Substance: DIVALPROEX SODIUM
     Indication: BIPOLAR DISORDER
     Route: 065
  2. MOTRIN IB [Suspect]
     Active Substance: IBUPROFEN
     Indication: PAIN
     Route: 065
     Dates: start: 2019

REACTIONS (1)
  - Drug ineffective [Unknown]
